FAERS Safety Report 24152619 (Version 1)
Quarter: 2024Q3

REPORT INFORMATION
  Report Type: Report from Study
  Country: SA (occurrence: SA)
  Receive Date: 20240730
  Receipt Date: 20240730
  Transmission Date: 20241016
  Serious: Yes (Death)
  Sender: ABBVIE
  Company Number: SA-ABBVIE-5858972

PATIENT
  Age: 80 Year
  Sex: Female

DRUGS (2)
  1. CARBIDOPA\LEVODOPA [Suspect]
     Active Substance: CARBIDOPA\LEVODOPA
     Indication: Product used for unknown indication
     Dosage: MORNING DOSE: 4.5 CONTINUOUS  DOSE: 2.8 EXTRA DOSE: 1.3
     Route: 050
     Dates: start: 20181224, end: 20240723
  2. CARBIDOPA\LEVODOPA [Suspect]
     Active Substance: CARBIDOPA\LEVODOPA

REACTIONS (2)
  - Influenza [Fatal]
  - Dehydration [Unknown]

NARRATIVE: CASE EVENT DATE: 20240701
